FAERS Safety Report 5447203-5 (Version None)
Quarter: 2007Q3

REPORT INFORMATION
  Report Type: 
  Country: None (occurrence: None)
  Receive Date: 20070910
  Receipt Date: 20070830
  Transmission Date: 20080115
  Serious: Yes (Other)
  Sender: FDA-Public Use
  Company Number: PHMT2007CA01337

PATIENT
  Age: 57 Year
  Sex: Female

DRUGS (6)
  1. ZELNORM [Suspect]
     Indication: IRRITABLE BOWEL SYNDROME
     Dosage: 6 MG, TID
     Route: 048
     Dates: start: 20000201, end: 20070401
  2. NEXIUM [Concomitant]
     Dosage: 2 TAB/DAY
     Route: 048
     Dates: start: 20030101
  3. LORAZEPAM [Concomitant]
     Dosage: 2 MG, QD, BEDTIME
     Route: 048
  4. TYLENOL (CAPLET) [Concomitant]
     Route: 048
  5. TUMS [Concomitant]
     Route: 048
  6. VENTOLIN [Concomitant]

REACTIONS (2)
  - CEREBROVASCULAR ACCIDENT [None]
  - MYOCARDIAL ISCHAEMIA [None]
